FAERS Safety Report 4552474-3 (Version None)
Quarter: 2005Q1

REPORT INFORMATION
  Report Type: 
  Country: None (occurrence: None)
  Receive Date: 20050114
  Receipt Date: 20041129
  Transmission Date: 20050727
  Serious: No
  Sender: FDA-Public Use
  Company Number: US-BRISTOL-MYERS SQUIBB COMPANY-12778957

PATIENT
  Age: 7 Decade
  Sex: Male

DRUGS (5)
  1. CISPLATIN [Suspect]
     Indication: NON-SMALL CELL LUNG CANCER
     Route: 042
  2. ETOPOSIDE [Concomitant]
  3. ALOXI [Concomitant]
     Indication: PREMEDICATION
  4. EMEND [Concomitant]
     Indication: PREMEDICATION
  5. DEXAMETHASONE [Concomitant]
     Indication: PREMEDICATION

REACTIONS (1)
  - URTICARIA [None]
